FAERS Safety Report 18932534 (Version 4)
Quarter: 2021Q2

REPORT INFORMATION
  Report Type: Spontaneous
  Country: US (occurrence: US)
  Receive Date: 20210224
  Receipt Date: 20210617
  Transmission Date: 20210717
  Serious: Yes (Other)
  Sender: FDA-Public Use
  Company Number: US-BAYER-2021-069355

PATIENT
  Age: 42 Year
  Sex: Female

DRUGS (2)
  1. MIRENA [Suspect]
     Active Substance: LEVONORGESTREL
     Indication: HEAVY MENSTRUAL BLEEDING
     Dosage: 20 ?G PER DAY, CONTINUOUSLY
     Route: 015
     Dates: start: 20201022, end: 20210104
  2. JARDIANCE [Concomitant]
     Active Substance: EMPAGLIFLOZIN
     Indication: DIABETES MELLITUS
     Dosage: UNK
     Dates: start: 20201022

REACTIONS (17)
  - Diarrhoea haemorrhagic [Recovering/Resolving]
  - Nausea [Recovering/Resolving]
  - Weight decreased [Recovering/Resolving]
  - Abdominal pain [Recovering/Resolving]
  - Headache [Recovering/Resolving]
  - Urinary tract infection [None]
  - Vomiting [Recovering/Resolving]
  - Anxiety [Recovering/Resolving]
  - Device expulsion [Recovered/Resolved]
  - Stress [Not Recovered/Not Resolved]
  - Heavy menstrual bleeding [Recovering/Resolving]
  - Depression [Recovering/Resolving]
  - Uterine scar [None]
  - Pelvic pain [Not Recovered/Not Resolved]
  - Colitis [Recovering/Resolving]
  - Haematuria [None]
  - Amnesia [Recovering/Resolving]

NARRATIVE: CASE EVENT DATE: 20201022
